FAERS Safety Report 21285016 (Version 1)
Quarter: 2022Q3

REPORT INFORMATION
  Report Type: Spontaneous
  Country: IN (occurrence: IN)
  Receive Date: 20220902
  Receipt Date: 20220902
  Transmission Date: 20221026
  Serious: Yes (Other)
  Sender: FDA-Public Use
  Company Number: IN-HETERO-HET2022IN02092

PATIENT
  Age: 36 Year
  Sex: Male

DRUGS (4)
  1. PREGABALIN [Suspect]
     Active Substance: PREGABALIN
     Indication: Product used for unknown indication
     Dosage: 75 MG
     Route: 065
  2. PREGABALIN [Suspect]
     Active Substance: PREGABALIN
     Dosage: INCREASED NUMBER OF PILLS TO 5 AND STARTED TAKING DURING DAY TIME
     Route: 065
  3. PREGABALIN [Suspect]
     Active Substance: PREGABALIN
     Dosage: INCREASED NUMBER OF PILLS TO 30 PER DAY
     Route: 065
  4. METHYLCOBALAMIN [Concomitant]
     Active Substance: METHYLCOBALAMIN
     Indication: Product used for unknown indication
     Dosage: 750 MICROGRAM
     Route: 065

REACTIONS (10)
  - Dependence [Unknown]
  - Drug dependence [Recovering/Resolving]
  - Drug abuse [Unknown]
  - Feeling of relaxation [Unknown]
  - Euphoric mood [Unknown]
  - Tremor [Unknown]
  - Dizziness [Unknown]
  - Myalgia [Unknown]
  - Nausea [Unknown]
  - Headache [Unknown]
